FAERS Safety Report 7865047-1 (Version None)
Quarter: 2011Q4

REPORT INFORMATION
  Report Type: 
  Country: None (occurrence: None)
  Receive Date: 20111028
  Receipt Date: 20101006
  Transmission Date: 20120403
  Serious: No
  Sender: FDA-Public Use
  Company Number: US-GLAXOSMITHKLINE-A0885231A

PATIENT
  Age: 72 Year
  Sex: Female

DRUGS (8)
  1. ADVAIR DISKUS 100/50 [Suspect]
     Indication: SARCOIDOSIS
     Dosage: 1PUFF TWICE PER DAY
     Route: 055
     Dates: start: 20101001
  2. LASIX [Concomitant]
  3. CYANOCOBALAMIN [Concomitant]
  4. CO Q 10 [Concomitant]
  5. POTASSIUM [Concomitant]
  6. ALBUTEROL [Concomitant]
  7. PULMICORT [Concomitant]
  8. OXYGEN [Concomitant]

REACTIONS (2)
  - CHEST DISCOMFORT [None]
  - DYSPNOEA [None]
